FAERS Safety Report 7479868-0 (Version None)
Quarter: 2011Q2

REPORT INFORMATION
  Report Type: 
  Country: None (occurrence: None)
  Receive Date: 20110515
  Receipt Date: 20110223
  Transmission Date: 20111010
  Serious: No
  Sender: FDA-Public Use
  Company Number: US-NOVEN-11US001856

PATIENT
  Sex: Male
  Weight: 26.757 kg

DRUGS (2)
  1. DAYTRANA [Suspect]
     Indication: ATTENTION DEFICIT/HYPERACTIVITY DISORDER
     Dosage: 20 MG FOR 9 HR
     Route: 062
     Dates: start: 20070101
  2. RISPERDAL [Concomitant]
     Indication: ASPERGER'S DISORDER
     Dosage: .25 MG, QD
     Route: 048
     Dates: start: 20070101

REACTIONS (3)
  - PRODUCT QUALITY ISSUE [None]
  - PSYCHOMOTOR HYPERACTIVITY [None]
  - DRUG INEFFECTIVE [None]
